FAERS Safety Report 5345030-0 (Version None)
Quarter: 2007Q2

REPORT INFORMATION
  Report Type: 
  Country: None (occurrence: None)
  Receive Date: 20070425
  Receipt Date: 20060620
  Transmission Date: 20071010
  Serious: Yes (Other)
  Sender: FDA-Public Use
  Company Number: 2006-BP-06722YA

PATIENT
  Age: 70 Year
  Sex: Female

DRUGS (1)
  1. TAMSULOSIN CAPSULES (TAMSULOSIN) [Suspect]
     Indication: URINARY RETENTION
     Dosage: PO
     Route: 048

REACTIONS (1)
  - IRIS DISORDER [None]
